FAERS Safety Report 8717835 (Version 2)
Quarter: 2015Q3

REPORT INFORMATION
  Report Type: Report from Study
  Country: US (occurrence: US)
  Receive Date: 20120810
  Receipt Date: 20150911
  Transmission Date: 20151125
  Serious: Yes (Hospitalization)
  Sender: FDA-Public Use
  Company Number: US-ROCHE-1097575

PATIENT
  Age: 46 Year
  Sex: Female

DRUGS (1)
  1. ACTIVASE [Suspect]
     Active Substance: ALTEPLASE
     Indication: ACUTE MYOCARDIAL INFARCTION
     Route: 042

REACTIONS (5)
  - Ventricular tachycardia [Unknown]
  - Hot flush [Unknown]
  - Chest discomfort [Unknown]
  - Nausea [Unknown]
  - Blood potassium decreased [Unknown]
